FAERS Safety Report 10414752 (Version 2)
Quarter: 2014Q4

REPORT INFORMATION
  Report Type: Spontaneous
  Country: US (occurrence: None)
  Receive Date: 20140604
  Receipt Date: 20141205
  Transmission Date: 20150528
  Serious: No
  Sender: FDA-Public Use
  Company Number: 163-POMAL-14035293

PATIENT
  Age: 68 Year
  Sex: Male
  Weight: 90 kg

DRUGS (15)
  1. FENTANYL. [Concomitant]
     Active Substance: FENTANYL
  2. ASPIRIN (ACETYLSALICYLIC ACID) [Concomitant]
     Active Substance: ASPIRIN
  3. ACYCLOVIR. [Concomitant]
     Active Substance: ACYCLOVIR
  4. ECOTRIN (ACETYLSALICYIC) [Concomitant]
  5. COMPAZINE [Concomitant]
     Active Substance: PROCHLORPERAZINE MALEATE
  6. POMALYST [Suspect]
     Active Substance: POMALIDOMIDE
     Indication: PLASMA CELL MYELOMA
     Dosage: 4 MG, 21 IN 21 D
     Route: 048
     Dates: start: 20130808
  7. VELCADE [Concomitant]
     Active Substance: BORTEZOMIB
  8. DEXAMETHASONE. [Concomitant]
     Active Substance: DEXAMETHASONE
  9. FLEXERIL [Concomitant]
     Active Substance: CYCLOBENZAPRINE HYDROCHLORIDE
  10. ERYTHROMYCIN (ERYTHROMYCIN) [Concomitant]
     Active Substance: ERYTHROMYCIN
  11. PERIDEX [Concomitant]
     Active Substance: CHLORHEXIDINE GLUCONATE
  12. LUPRON (LEUPROLIN ACETATE) [Concomitant]
  13. MULTIVITAMINS (ERGOCALCIFEROL, ASCORBIC ACID, FOLIC ACID, THIAMINE HYDROCHLORIDE, RETINOL, RIBOFLAVIN, NICOTINAMIDE, PANTHENOL) [Concomitant]
  14. NORVASC [Concomitant]
     Active Substance: AMLODIPINE BESYLATE
  15. 6-MP (MERCAPTOPRUINE) [Concomitant]

REACTIONS (3)
  - Urinary tract infection [None]
  - Metapneumovirus infection [None]
  - Bronchitis [None]

NARRATIVE: CASE EVENT DATE: 201402
